FAERS Safety Report 5010385-3 (Version None)
Quarter: 2006Q2

REPORT INFORMATION
  Report Type: 
  Country: None (occurrence: None)
  Receive Date: 20060523
  Receipt Date: 20060508
  Transmission Date: 20061013
  Serious: Yes (Hospitalization)
  Sender: FDA-Public Use
  Company Number: 2006-080

PATIENT
  Age: 10 Month
  Sex: Female

DRUGS (1)
  1. CITALOPRAM [Suspect]

REACTIONS (4)
  - ACCIDENTAL DRUG INTAKE BY CHILD [None]
  - ACCIDENTAL OVERDOSE [None]
  - CONVULSION [None]
  - NYSTAGMUS [None]
